FAERS Safety Report 8017024-8 (Version None)
Quarter: 2012Q1

REPORT INFORMATION
  Report Type: 
  Country: None (occurrence: None)
  Receive Date: 20120102
  Receipt Date: 20111228
  Transmission Date: 20120608
  Serious: Yes (Death, Hospitalization, Congenital Anomaly)
  Sender: FDA-Public Use
  Company Number: PHHY2011VN113015

PATIENT
  Sex: Female
  Weight: 3.2 kg

DRUGS (1)
  1. VOLTAREN [Suspect]
     Dosage: MATERNAL DOSE: 75 MG, 2-3 TIMES DAILY
     Route: 064

REACTIONS (7)
  - FOETAL EXPOSURE DURING PREGNANCY [None]
  - NEONATAL ASPIRATION [None]
  - FOETAL HEART RATE ABNORMAL [None]
  - CRYING [None]
  - PULMONARY HYPERTENSION [None]
  - DYSPNOEA [None]
  - LUNG DISORDER [None]
